FAERS Safety Report 16125670 (Version 1)
Quarter: 2019Q1

REPORT INFORMATION
  Report Type: Spontaneous
  Country: FR (occurrence: FR)
  Receive Date: 20190328
  Receipt Date: 20190328
  Transmission Date: 20190418
  Serious: Yes (Hospitalization)
  Sender: FDA-Public Use
  Company Number: FR-TEVA-2019-FR-1029843

PATIENT
  Age: 42 Year
  Sex: Male

DRUGS (7)
  1. LORMETAZEPAM [Suspect]
     Active Substance: LORMETAZEPAM
     Indication: PARANOID PERSONALITY DISORDER
     Dosage: 2 MILLIGRAM DAILY;
     Route: 048
     Dates: end: 20190208
  2. NITRAZEPAM [Concomitant]
     Active Substance: NITRAZEPAM
  3. AMANTADINE (CHLORHYDRATE D^) [Concomitant]
  4. CLOZAPINE. [Suspect]
     Active Substance: CLOZAPINE
     Indication: PARANOID PERSONALITY DISORDER
     Dosage: 400 MILLIGRAM DAILY;
     Route: 048
     Dates: start: 20190208, end: 20190211
  5. ALPRAZOLAM. [Suspect]
     Active Substance: ALPRAZOLAM
     Indication: PARANOID PERSONALITY DISORDER
     Dosage: 1.5 MILLIGRAM DAILY;
     Route: 048
     Dates: end: 20190208
  6. TROPATEPINE (CHLORHYDRATE DE) [Suspect]
     Active Substance: TROPATEPINE HYDROCHLORIDE
     Indication: PRODUCT USED FOR UNKNOWN INDICATION
     Dosage: 20 MILLIGRAM DAILY;
     Route: 048
     Dates: start: 20190208, end: 20190211
  7. LOXAPINE (SUCCINATE DE) [Suspect]
     Active Substance: LOXAPINE SUCCINATE
     Indication: PARANOID PERSONALITY DISORDER
     Dosage: 300 MILLIGRAM DAILY;
     Route: 048
     Dates: start: 20190208, end: 20190211

REACTIONS (2)
  - Drug withdrawal convulsions [Recovered/Resolved]
  - Seizure [Recovered/Resolved]

NARRATIVE: CASE EVENT DATE: 20190211
